FAERS Safety Report 5674339-6 (Version None)
Quarter: 2008Q2

REPORT INFORMATION
  Report Type: 
  Country: None (occurrence: None)
  Receive Date: 20080229
  Receipt Date: 20070310
  Transmission Date: 20081010
  Serious: Yes (Other)
  Sender: FDA-Public Use
  Company Number: 233712

PATIENT
  Age: 16 Year
  Sex: Male
  Weight: 56.5 kg

DRUGS (1)
  1. NUTROPIN AQ [Suspect]
     Indication: GROWTH HORMONE DEFICIENCY
     Dosage: 3.4 MG, /7/WEEK
     Dates: start: 20030930

REACTIONS (1)
  - SCOLIOSIS [None]
